FAERS Safety Report 5027840-2 (Version None)
Quarter: 2006Q2

REPORT INFORMATION
  Report Type: 
  Country: None (occurrence: None)
  Receive Date: 20060616
  Receipt Date: 20050922
  Transmission Date: 20061013
  Serious: Yes (Death, Hospitalization)
  Sender: FDA-Public Use
  Company Number: 2005AC01491

PATIENT
  Age: 29 Year
  Sex: Female

DRUGS (5)
  1. SEROQUEL [Suspect]
  2. AMANTADINE HCL [Suspect]
  3. VENLAFAXINE HCL [Suspect]
  4. NORVENLAFAXINE [Suspect]
  5. PHENYTOIN [Suspect]

REACTIONS (4)
  - COMPLETED SUICIDE [None]
  - CONVULSION [None]
  - DRUG TOXICITY [None]
  - VISCERAL OEDEMA [None]
